FAERS Safety Report 16882097 (Version 1)
Quarter: 2019Q4

REPORT INFORMATION
  Report Type: Other
  Country: TR (occurrence: TR)
  Receive Date: 20191003
  Receipt Date: 20191003
  Transmission Date: 20200122
  Serious: Yes (Hospitalization)
  Sender: FDA-Public Use
  Company Number: TR-NOSTRUM LABORATORIES, INC.-2075268

PATIENT
  Age: 4 Year
  Sex: Female

DRUGS (2)
  1. CLARITHROMYCIN EXTENDED RELEASE [Suspect]
     Active Substance: CLARITHROMYCIN
     Indication: ACUTE SINUSITIS
     Route: 048
  2. MONTELUKAST [Interacting]
     Active Substance: MONTELUKAST SODIUM
     Route: 048

REACTIONS (4)
  - Acute sinusitis [Recovered/Resolved]
  - Cushing^s syndrome [Recovered/Resolved]
  - Dyslipidaemia [Unknown]
  - Eosinophilic granulomatosis with polyangiitis [Recovered/Resolved]
